FAERS Safety Report 23953197 (Version 1)
Quarter: 2024Q2

REPORT INFORMATION
  Report Type: Spontaneous
  Country: JP (occurrence: JP)
  Receive Date: 20240608
  Receipt Date: 20240608
  Transmission Date: 20240715
  Serious: Yes (Hospitalization)
  Sender: FDA-Public Use
  Company Number: JP-NOVITIUMPHARMA-2024JPNVP01005

PATIENT
  Sex: Male

DRUGS (6)
  1. ACYCLOVIR [Suspect]
     Active Substance: ACYCLOVIR
     Indication: Ophthalmic herpes zoster
     Route: 042
  2. ACYCLOVIR [Suspect]
     Active Substance: ACYCLOVIR
     Indication: Trigeminal neuralgia
     Dosage: DOSE DECREASED
  3. GATIFLOXACIN [Concomitant]
     Active Substance: GATIFLOXACIN
     Indication: Ophthalmic herpes zoster
  4. GATIFLOXACIN [Concomitant]
     Active Substance: GATIFLOXACIN
     Indication: Trigeminal neuralgia
  5. PREGABALIN [Concomitant]
     Active Substance: PREGABALIN
     Indication: Ophthalmic herpes zoster
  6. PREGABALIN [Concomitant]
     Active Substance: PREGABALIN
     Indication: Trigeminal neuralgia

REACTIONS (1)
  - Drug ineffective [Unknown]
